FAERS Safety Report 7352383-0 (Version None)
Quarter: 2011Q1

REPORT INFORMATION
  Report Type: 
  Country: None (occurrence: None)
  Receive Date: 20110315
  Receipt Date: 20110307
  Transmission Date: 20110831
  Serious: Yes (Other)
  Sender: FDA-Public Use
  Company Number: US-ASTRAZENECA-2011SE13048

PATIENT
  Age: 22880 Day
  Sex: Female

DRUGS (2)
  1. SYMBICORT [Suspect]
     Indication: ASTHMA
     Dosage: 160/4.5 MCG, 1 PUFF
     Route: 055
     Dates: start: 20100101
  2. XANAX [Concomitant]
     Indication: SLEEP DISORDER

REACTIONS (1)
  - CONVULSION [None]
